FAERS Safety Report 9515487 (Version 2)
Quarter: 2013Q4

REPORT INFORMATION
  Report Type: Spontaneous
  Country: US (occurrence: US)
  Receive Date: 20130911
  Receipt Date: 20131122
  Transmission Date: 20140711
  Serious: Yes (Life-Threatening)
  Sender: FDA-Public Use
  Company Number: PHEH2013US018906

PATIENT
  Sex: Male

DRUGS (1)
  1. MYFORTIC [Suspect]
     Dosage: UNK

REACTIONS (5)
  - Feeling abnormal [Unknown]
  - Malaise [Unknown]
  - Influenza [Unknown]
  - Fatigue [Unknown]
  - Asthenia [Unknown]
